FAERS Safety Report 23797684 (Version 1)
Quarter: 2024Q2

REPORT INFORMATION
  Report Type: Report from Study
  Country: US (occurrence: US)
  Receive Date: 20240430
  Receipt Date: 20240430
  Transmission Date: 20240716
  Serious: Yes (Hospitalization, Other)
  Sender: FDA-Public Use
  Company Number: US-AUROBINDO-AUR-APL-2024-019351

PATIENT
  Age: 26 Year
  Sex: Male

DRUGS (3)
  1. AMPICILLIN SODIUM\SULBACTAM SODIUM [Suspect]
     Active Substance: AMPICILLIN SODIUM\SULBACTAM SODIUM
     Indication: Pneumonia
     Dosage: 9 GRAM, 3 TIMES A DAY AS A PROLONGED INFUSION OVER 4 HOURS,
     Route: 065
  2. MEROPENEM [Suspect]
     Active Substance: MEROPENEM
     Indication: Pneumonia
     Dosage: 2 GRAM, 3 TIMES A DAY OVER 3 HOURS
     Route: 065
  3. POLYMYXIN B [Suspect]
     Active Substance: POLYMYXIN B
     Indication: Pneumonia
     Dosage: UNK, 25000 IU/KG LOADING DOSE FOLLOWED BY 15000 IU/KG EVERY 12 HOURS OVER A 2 HOURS
     Route: 065

REACTIONS (1)
  - Drug ineffective [Unknown]
